FAERS Safety Report 4357071-0 (Version None)
Quarter: 2004Q2

REPORT INFORMATION
  Report Type: 
  Country: None (occurrence: None)
  Receive Date: 20040507
  Receipt Date: 20040413
  Transmission Date: 20050107
  Serious: Yes (Death, Hospitalization)
  Sender: FDA-Public Use
  Company Number: WAES 0403USA02145

PATIENT
  Age: 87 Year
  Sex: Male

DRUGS (7)
  1. COZAAR [Suspect]
     Indication: HYPERTENSION
     Dosage: 50 MG
     Route: 048
     Dates: start: 20010622, end: 20030210
  2. AMLODIPINE BESYLATE [Concomitant]
  3. CIMETIDINE HCL [Concomitant]
  4. FAMOTIDINE [Concomitant]
  5. INDOMETHACIN [Concomitant]
  6. SENNOSIDES [Concomitant]
  7. FERROUS CITRATE [Concomitant]

REACTIONS (3)
  - NEPHROGENIC ANAEMIA [None]
  - RENAL FAILURE CHRONIC [None]
  - RENAL IMPAIRMENT [None]
